FAERS Safety Report 4472615-6 (Version None)
Quarter: 2004Q4

REPORT INFORMATION
  Report Type: 
  Country: None (occurrence: None)
  Receive Date: 20041008
  Receipt Date: 20040921
  Transmission Date: 20050328
  Serious: Yes (Death)
  Sender: FDA-Public Use
  Company Number: CA_040907284

PATIENT
  Age: 60 Year
  Sex: Male

DRUGS (1)
  1. XIGRIS [Suspect]

REACTIONS (3)
  - CATHETER RELATED COMPLICATION [None]
  - INCISION SITE HAEMORRHAGE [None]
  - PULMONARY HAEMORRHAGE [None]
